FAERS Safety Report 25574055 (Version 3)
Quarter: 2025Q3

REPORT INFORMATION
  Report Type: Spontaneous
  Country: GB (occurrence: GB)
  Receive Date: 20250717
  Receipt Date: 20250812
  Transmission Date: 20251020
  Serious: Yes (Hospitalization, Other)
  Sender: MYLAN
  Company Number: GB-MYLANLABS-2025M1057963

PATIENT
  Sex: Male

DRUGS (5)
  1. CLOZARIL [Suspect]
     Active Substance: CLOZAPINE
     Indication: Schizophrenia
  2. LAMOTRIGINE [Concomitant]
     Active Substance: LAMOTRIGINE
  3. PENICILLIN [Concomitant]
     Active Substance: PENICILLIN
  4. ALLOPURINOL [Concomitant]
     Active Substance: ALLOPURINOL
  5. AMOXICILLIN\CLAVULANIC ACID [Concomitant]
     Active Substance: AMOXICILLIN\CLAVULANIC ACID

REACTIONS (9)
  - General physical health deterioration [Unknown]
  - Drug intolerance [Unknown]
  - Eosinophilia [Recovering/Resolving]
  - Renal impairment [Unknown]
  - Differential white blood cell count abnormal [Unknown]
  - Diarrhoea [Unknown]
  - Liver function test abnormal [Unknown]
  - C-reactive protein increased [Unknown]
  - Urinary tract disorder [Unknown]

NARRATIVE: CASE EVENT DATE: 20250701
